FAERS Safety Report 13874559 (Version 1)
Quarter: 2017Q3

REPORT INFORMATION
  Report Type: Spontaneous
  Country: US (occurrence: US)
  Receive Date: 20170816
  Receipt Date: 20170816
  Transmission Date: 20171127
  Serious: No
  Sender: FDA-Public Use
  Company Number: US-ROCHE-1135379

PATIENT
  Age: 82 Year
  Sex: Female

DRUGS (3)
  1. PROPARACAINE [Concomitant]
     Active Substance: PROPARACAINE
     Route: 065
     Dates: start: 20120803, end: 20120803
  2. LUCENTIS [Suspect]
     Active Substance: RANIBIZUMAB
     Indication: NEOVASCULAR AGE-RELATED MACULAR DEGENERATION
     Route: 042
     Dates: start: 20120803, end: 20120803
  3. BETADINE [Concomitant]
     Active Substance: POVIDONE-IODINE
     Route: 065
     Dates: start: 20120803, end: 20120803

REACTIONS (8)
  - Nausea [Recovered/Resolved]
  - Nervous system disorder [Unknown]
  - Unevaluable event [Unknown]
  - Pruritus [Recovered/Resolved]
  - Urinary incontinence [Unknown]
  - Paraesthesia [Recovered/Resolved]
  - Hypoaesthesia [Recovered/Resolved]
  - Dysphagia [Recovered/Resolved]

NARRATIVE: CASE EVENT DATE: 20120803
